FAERS Safety Report 6795119-4 (Version None)
Quarter: 2010Q2

REPORT INFORMATION
  Report Type: 
  Country: None (occurrence: None)
  Receive Date: 20100625
  Receipt Date: 20100625
  Transmission Date: 20101027
  Serious: Yes (Hospitalization)
  Sender: FDA-Public Use
  Company Number: PHHO2009US13699

PATIENT
  Sex: Male

DRUGS (4)
  1. AFINITOR [Suspect]
     Indication: PANCREATIC NEUROENDOCRINE TUMOUR
     Dosage: 10 MG DAILY
     Route: 048
     Dates: start: 20090820, end: 20091023
  2. LOVENOX [Concomitant]
     Dosage: UNK
  3. POTASSIUM CHLORIDE [Concomitant]
  4. HYDROCODONE [Concomitant]
     Dosage: UNK

REACTIONS (6)
  - CHEST PAIN [None]
  - DYSPNOEA [None]
  - MITRAL VALVE CALCIFICATION [None]
  - PULMONARY EMBOLISM [None]
  - REGURGITATION [None]
  - VENTRICULAR HYPERTROPHY [None]
